FAERS Safety Report 4766439-X (Version None)
Quarter: 2005Q3

REPORT INFORMATION
  Report Type: 
  Country: None (occurrence: None)
  Receive Date: 20050912
  Receipt Date: 20050902
  Transmission Date: 20060218
  Serious: Yes (Other)
  Sender: FDA-Public Use
  Company Number: GB-ROCHE-416446

PATIENT
  Age: 34 Year
  Sex: Male

DRUGS (2)
  1. PEGASYS [Suspect]
     Route: 058
     Dates: start: 20041001, end: 20050318
  2. COPEGUS [Suspect]
     Route: 048
     Dates: start: 20041001, end: 20050318

REACTIONS (4)
  - DYSPNOEA [None]
  - RASH [None]
  - SARCOIDOSIS [None]
  - SKIN LESION [None]
